FAERS Safety Report 18686971 (Version 1)
Quarter: 2020Q4

REPORT INFORMATION
  Report Type: Spontaneous
  Country: CA (occurrence: CA)
  Receive Date: 20201231
  Receipt Date: 20201231
  Transmission Date: 20210114
  Serious: Yes (Hospitalization, Other)
  Sender: FDA-Public Use
  Company Number: CA-LUPIN PHARMACEUTICALS INC.-2020-11113

PATIENT
  Age: 39 Year
  Sex: Female

DRUGS (36)
  1. MORPHINE [Suspect]
     Active Substance: MORPHINE
     Dosage: GESTATIONAL AGE: 24 TO 29 WEEKS; SLOW RELEASE; OVERDOSES
     Route: 048
  2. METHADONE [Suspect]
     Active Substance: METHADONE HYDROCHLORIDE
     Dosage: 145 MILLIGRAM (GESTATIONAL AGE: 21 WEEKS)
     Route: 065
  3. METHADONE [Suspect]
     Active Substance: METHADONE HYDROCHLORIDE
     Dosage: 155 MILLIGRAM (GESTATIONAL AGE: 23 WEEKS)
     Route: 065
  4. METHADONE [Suspect]
     Active Substance: METHADONE HYDROCHLORIDE
     Dosage: 28 MILLIGRAM (GESTATIONAL AGE: 28 WEEKS; OVERDOSE)
     Route: 065
  5. LEVAMISOLE [Suspect]
     Active Substance: LEVAMISOLE
     Indication: DRUG ABUSE
     Dosage: UNK
     Route: 065
  6. MORPHINE [Suspect]
     Active Substance: MORPHINE
     Dosage: GESTATIONAL AGE: 21 AND 23 WEEKS; SLOW RELEASE
     Route: 048
  7. MORPHINE [Suspect]
     Active Substance: MORPHINE
     Dosage: GESTATIONAL AGE: 30 WEEKS AND 31 WEEKS; 2 OVERDOSES; SLOW RELEASE
     Route: 048
  8. METHADONE [Suspect]
     Active Substance: METHADONE HYDROCHLORIDE
     Dosage: 50 MILLIGRAM (DAY 2)
     Route: 065
  9. HYDROMORPHONE [Suspect]
     Active Substance: HYDROMORPHONE
     Indication: DRUG USE DISORDER
     Dosage: 75 MILLIGRAM
  10. HYDROMORPHONE [Suspect]
     Active Substance: HYDROMORPHONE
     Dosage: 10 MILLIGRAM
     Route: 030
  11. METHADONE [Suspect]
     Active Substance: METHADONE HYDROCHLORIDE
     Dosage: 125 MILLIGRAM (GESTATIONAL AGE: 15 WEEKS)
     Route: 065
  12. METHADONE [Suspect]
     Active Substance: METHADONE HYDROCHLORIDE
     Dosage: 135 MILLIGRAM (GESTATIONAL AGE: 19 WEEKS)
     Route: 065
  13. METHADONE [Suspect]
     Active Substance: METHADONE HYDROCHLORIDE
     Dosage: 145 MILLIGRAM (GESTATIONAL AGE: 32-37 WEEKS)
     Route: 065
  14. HYDROMORPHONE [Suspect]
     Active Substance: HYDROMORPHONE
     Dosage: 10 MILLIGRAM
  15. FENTANYL. [Suspect]
     Active Substance: FENTANYL
     Indication: DRUG ABUSE
     Dosage: 1 GRAM, QD
     Route: 042
  16. METHADONE [Suspect]
     Active Substance: METHADONE HYDROCHLORIDE
     Dosage: 90 MILLIGRAM (GESTATIONAL AGE: 9 WEEKS)
     Route: 065
  17. METHADONE [Suspect]
     Active Substance: METHADONE HYDROCHLORIDE
     Dosage: 60 MILLIGRAM (DAY 3)
     Route: 065
  18. METHADONE [Suspect]
     Active Substance: METHADONE HYDROCHLORIDE
     Dosage: DAY 7
     Route: 065
  19. NALOXONE [Suspect]
     Active Substance: NALOXONE
     Indication: DRUG THERAPY
     Dosage: UNK
     Route: 065
  20. LEVAMISOLE [Suspect]
     Active Substance: LEVAMISOLE
     Indication: OVERDOSE
  21. MORPHINE [Suspect]
     Active Substance: MORPHINE
     Indication: DRUG USE DISORDER
     Dosage: GESTATIONAL AGE: 9 WEEKS; SLOW RELEASE
     Route: 048
  22. MORPHINE [Suspect]
     Active Substance: MORPHINE
     Dosage: GESTATIONAL AGE: 19 WEEKS; SLOW RELEASE
     Route: 048
  23. MORPHINE [Suspect]
     Active Substance: MORPHINE
     Dosage: UNK (30-50MG ORALLY Q2 HR PRN)
     Route: 048
  24. HYDROMORPHONE [Suspect]
     Active Substance: HYDROMORPHONE
     Dosage: 90 MILLIGRAM
     Route: 030
  25. METHADONE [Suspect]
     Active Substance: METHADONE HYDROCHLORIDE
     Dosage: 50 MILLIGRAM (GESTATIONAL AGE: 26 WEEKS)
     Route: 065
  26. METHADONE [Suspect]
     Active Substance: METHADONE HYDROCHLORIDE
     Dosage: DAY 4- 6
     Route: 065
  27. METHADONE [Suspect]
     Active Substance: METHADONE HYDROCHLORIDE
     Dosage: 65 MILLIGRAM (GESTATIONAL AGE: 29 WEEKS)
     Route: 065
  28. METHADONE [Suspect]
     Active Substance: METHADONE HYDROCHLORIDE
     Dosage: 95 MILLIGRAM (GESTATIONAL AGE: 31 WEEKS)
     Route: 065
  29. MORPHINE [Suspect]
     Active Substance: MORPHINE
     Dosage: GESTATIONAL AGE: 11 AND 15 WEEKS; SLOW RELEASE
     Route: 048
  30. METHADONE [Suspect]
     Active Substance: METHADONE HYDROCHLORIDE
     Dosage: 40 MILLIGRAM (DAY 1)
     Route: 065
  31. MORPHINE [Suspect]
     Active Substance: MORPHINE
     Dosage: GESTATIONAL AGE: 32-37 WEEKS; SLOW RELEASE
     Route: 048
  32. HYDROMORPHONE [Suspect]
     Active Substance: HYDROMORPHONE
     Dosage: 90 MILLIGRAM
  33. METHADONE [Suspect]
     Active Substance: METHADONE HYDROCHLORIDE
     Indication: DRUG USE DISORDER
     Dosage: 60 MILLIGRAM, QD (GESTATIONAL AGE: 7 WEEKS)
     Route: 065
  34. METHADONE [Suspect]
     Active Substance: METHADONE HYDROCHLORIDE
     Dosage: 110 MILLIGRAM (GESTATIONAL AGE: 11 WEEKS)
     Route: 065
  35. METHADONE [Suspect]
     Active Substance: METHADONE HYDROCHLORIDE
     Dosage: 80 MILLIGRAM (GESTATIONAL AGE: 30 WEEKS; 2 OVERDOSES)
     Route: 065
  36. CARFENATNIL [Suspect]
     Active Substance: CARFENTANIL
     Indication: DRUG ABUSE
     Dosage: UNK
     Route: 065

REACTIONS (7)
  - Rhinorrhoea [Recovering/Resolving]
  - Exposure during pregnancy [Unknown]
  - Hyperhidrosis [Recovering/Resolving]
  - Drug use disorder [Recovered/Resolved]
  - Drug withdrawal syndrome [Recovering/Resolving]
  - Restlessness [Recovering/Resolving]
  - Off label use [Unknown]
